FAERS Safety Report 6153296-2 (Version None)
Quarter: 2009Q2

REPORT INFORMATION
  Report Type: 
  Country: None (occurrence: None)
  Receive Date: 20090413
  Receipt Date: 20090403
  Transmission Date: 20091009
  Serious: Yes (Hospitalization, Other)
  Sender: FDA-Public Use
  Company Number: PHHY2009CA06755

PATIENT
  Sex: Female

DRUGS (34)
  1. CLOZARIL [Suspect]
     Indication: SCHIZOPHRENIA
     Dosage: 250 MG, QHS
     Route: 048
     Dates: start: 20080811
  2. CLOZARIL [Suspect]
     Dosage: 450 MG DAILY
     Route: 048
  3. CLOZARIL [Suspect]
     Dosage: 400 MG PER DAY WAS DISCONTINUED BUT 50 MG PER NOON WAS CONTINUED.
     Route: 048
     Dates: start: 20090206
  4. CLOZARIL [Suspect]
     Dosage: 50 MG/NOON
     Route: 048
     Dates: start: 20090207, end: 20090210
  5. CLOZARIL [Suspect]
     Dosage: 100 MG/HS
     Dates: start: 20090211, end: 20090213
  6. CLOZARIL [Suspect]
     Dosage: 150 MG/HS
     Dates: start: 20090214, end: 20090216
  7. CLOZARIL [Suspect]
     Dosage: 200 MG/HS
     Route: 048
     Dates: start: 20090217, end: 20090219
  8. CLOZARIL [Suspect]
     Dosage: 250  MG/HS
     Route: 048
     Dates: start: 20090220, end: 20090222
  9. CLOZARIL [Suspect]
     Dosage: 250 MG/HS + 50 MG/NOON
     Route: 048
     Dates: start: 20090223, end: 20090225
  10. CLOZARIL [Suspect]
     Dosage: 250 MG/HS+100 MG/NOON
     Route: 048
     Dates: start: 20090226
  11. OXACARBAZEPINE [Concomitant]
     Dosage: 600 MG, BID
     Route: 048
  12. VALPROIC ACID [Concomitant]
     Dosage: 500 MG, BID
     Route: 048
  13. METFORMIN HCL [Concomitant]
     Dosage: 500 MG, BID
     Route: 048
  14. ACIDOTHILUS [Concomitant]
     Dosage: 1 DF, TID
     Route: 048
  15. FERROUS GLUCONATE [Concomitant]
     Dosage: 300 MG, BID
     Route: 048
  16. LEVOTHYROXINE SODIUM [Concomitant]
     Dosage: 0.1 MG, QD
     Route: 048
  17. VANCOMYCIN HCL [Concomitant]
     Dosage: 250 MG, Q6H
     Route: 048
  18. VANCOMYCIN HCL [Concomitant]
     Dosage: 1 GM IV QL2H X 4
     Route: 042
  19. UREMOL [Concomitant]
     Dosage: 20 %, BID
     Route: 061
  20. ASPIRIN [Concomitant]
     Dosage: 81 MG, QD
     Route: 048
  21. QUETIAPINE [Concomitant]
     Dosage: 800 MG, QD
     Route: 048
  22. QUETIAPINE [Concomitant]
     Dosage: 100 MG, Q4H
     Route: 048
  23. IPRATROPIUM BROMIDE [Concomitant]
     Dosage: 2 SPRAYS BID AT 12.00 AND 21.00
  24. RAMIPRIL [Concomitant]
     Dosage: 10 MG, QD
     Route: 048
  25. ALLOPURINOL [Concomitant]
     Dosage: 50 MG AT 12.00
     Route: 048
  26. BENZTROPINE MESYLATE [Concomitant]
     Dosage: 2 MG, Q2H
     Route: 048
  27. ACETAMINOPHEN [Concomitant]
     Dosage: 500 MG 1 TO 2 TAB Q4H
     Route: 048
  28. EPINEPHRINE [Concomitant]
     Dosage: 0.3 MG, PRN
     Route: 030
  29. BISACODYL [Concomitant]
     Dosage: 100 MG/SUPP QHS
     Route: 048
  30. TRICLOSAN [Concomitant]
  31. MUPOROCIN [Concomitant]
  32. RIFAMPICIN [Concomitant]
  33. AVELOX [Concomitant]
  34. ANTIINFLAMMATORY/ANTIRHEUMATIC PRODUCTS [Concomitant]

REACTIONS (9)
  - CLOSTRIDIAL INFECTION [None]
  - DENTAL OPERATION [None]
  - HAEMATURIA [None]
  - INSPIRATORY CAPACITY DECREASED [None]
  - NEUTROPENIA [None]
  - PULMONARY FUNCTION TEST DECREASED [None]
  - SEPSIS [None]
  - SINUSITIS [None]
  - URINARY INCONTINENCE [None]
